FAERS Safety Report 7302191-1 (Version None)
Quarter: 2011Q1

REPORT INFORMATION
  Report Type: 
  Country: None (occurrence: None)
  Receive Date: 20110218
  Receipt Date: 20110208
  Transmission Date: 20110831
  Serious: Yes (Hospitalization, Other)
  Sender: FDA-Public Use
  Company Number: PHHY2011FR11155

PATIENT
  Sex: Male

DRUGS (11)
  1. SINTROM [Interacting]
     Dosage: 1 DF, QD
     Route: 048
     Dates: start: 19900101
  2. ENALAPRIL MALEATE [Concomitant]
     Dosage: 1 DF, QD
     Route: 048
     Dates: start: 20100531
  3. PAROXETINE [Concomitant]
     Dosage: 10 MG, DAILY
     Dates: start: 20100901
  4. TAHOR [Concomitant]
     Dosage: 20 MG, DAILY
     Dates: start: 20100531
  5. INSPRA [Concomitant]
     Dosage: 20 MG, DAILY
     Dates: start: 20100531
  6. COLCHIMAX [Interacting]
     Indication: GOUT
     Dosage: 1 DF, QD
     Dates: start: 20100901
  7. ALLOPURINOL [Suspect]
     Indication: GOUT
     Dosage: 200 MG, DAILY
     Dates: start: 20100901
  8. LASIX [Concomitant]
     Dosage: 250 MG, DAILY
     Dates: start: 20100531
  9. CLAMOXYL [Concomitant]
     Indication: ENDOCARDITIS
     Dosage: 5 G, TID
     Route: 048
     Dates: start: 20020101
  10. STILNOX [Concomitant]
     Dosage: 1 DF, QD
     Dates: start: 20100901
  11. CARDENSIEL [Concomitant]
     Dosage: 2 DF, DAILY
     Dates: start: 20100531

REACTIONS (6)
  - INTERNATIONAL NORMALISED RATIO INCREASED [None]
  - BLOOD CREATININE INCREASED [None]
  - ANAEMIA [None]
  - C-REACTIVE PROTEIN INCREASED [None]
  - DRUG INTERACTION [None]
  - FALL [None]
